FAERS Safety Report 5856874-0 (Version None)
Quarter: 2008Q3

REPORT INFORMATION
  Report Type: 
  Country: None (occurrence: None)
  Receive Date: 20080825
  Receipt Date: 20080813
  Transmission Date: 20090109
  Serious: Yes (Hospitalization, Other)
  Sender: FDA-Public Use
  Company Number: CA-PFIZER INC-2008068462

PATIENT
  Age: 24 Year

DRUGS (1)
  1. DILANTIN [Suspect]
     Indication: GRAND MAL CONVULSION
     Route: 048

REACTIONS (2)
  - DRUG PRESCRIBING ERROR [None]
  - THERAPEUTIC AGENT TOXICITY [None]
